FAERS Safety Report 4424490-3 (Version None)
Quarter: 2004Q3

REPORT INFORMATION
  Report Type: 
  Country: None (occurrence: None)
  Receive Date: 20040812
  Receipt Date: 20040802
  Transmission Date: 20050211
  Serious: Yes (Other)
  Sender: FDA-Public Use
  Company Number: CN-GLAXOSMITHKLINE-B0341775A

PATIENT
  Sex: Male

DRUGS (1)
  1. HEPTODIN [Suspect]
     Route: 048

REACTIONS (3)
  - ALANINE AMINOTRANSFERASE INCREASED [None]
  - HBV DNA INCREASED [None]
  - HEPATITIS B VIRUS [None]
